FAERS Safety Report 11709596 (Version 2)
Quarter: 2015Q4

REPORT INFORMATION
  Report Type: Spontaneous
  Country: US (occurrence: US)
  Receive Date: 20151104
  Receipt Date: 20151110
  Transmission Date: 20160304
  Serious: No
  Sender: FDA-Public Use
  Company Number: US-ELI_LILLY_AND_COMPANY-US201109000368

PATIENT
  Sex: Male

DRUGS (2)
  1. LEVOXYL [Concomitant]
     Active Substance: LEVOTHYROXINE SODIUM
     Indication: HYPOTHYROIDISM
  2. FORTEO [Suspect]
     Active Substance: TERIPARATIDE
     Indication: OSTEOPOROSIS
     Dosage: 20 UG, QD
     Dates: start: 20110826

REACTIONS (10)
  - Dizziness [Unknown]
  - Feeling abnormal [Unknown]
  - Adverse event [Unknown]
  - Diarrhoea [Unknown]
  - Bone pain [Unknown]
  - Dyspepsia [Unknown]
  - Arthritis [Unknown]
  - Malaise [Unknown]
  - Asthenia [Unknown]
  - Mobility decreased [Unknown]
